FAERS Safety Report 7078230-2 (Version None)
Quarter: 2010Q4

REPORT INFORMATION
  Report Type: 
  Country: None (occurrence: None)
  Receive Date: 20101102
  Receipt Date: 20101021
  Transmission Date: 20110411
  Serious: Yes (Other)
  Sender: FDA-Public Use
  Company Number: AT-JNJFOC-20100902535

PATIENT
  Sex: Female

DRUGS (2)
  1. STELARA [Suspect]
     Indication: ILL-DEFINED DISORDER
     Route: 058
  2. STELARA [Suspect]
     Route: 058

REACTIONS (1)
  - GAMMA-GLUTAMYLTRANSFERASE INCREASED [None]
